FAERS Safety Report 8808195 (Version 4)
Quarter: 2012Q4

REPORT INFORMATION
  Report Type: Report from Study
  Country: NL (occurrence: NL)
  Receive Date: 20120925
  Receipt Date: 20121106
  Transmission Date: 20130627
  Serious: Yes (Hospitalization)
  Sender: FDA-Public Use
  Company Number: NL-AMGEN-NLDCT2012059557

PATIENT
  Age: 61 Year
  Sex: Female
  Weight: 76.8 kg

DRUGS (18)
  1. DENOSUMAB [Suspect]
     Indication: BREAST CANCER
     Dosage: 120 mg, UNK
     Route: 058
     Dates: start: 20120710
  2. PEGFILGRASTIM [Concomitant]
     Dosage: 6 mg, UNK
     Route: 058
     Dates: start: 20120731
  3. DOCETAXEL [Concomitant]
     Dosage: 190 mg, UNK
     Route: 042
     Dates: start: 20120911
  4. CALCIUM CARBONATE [Concomitant]
     Dosage: 500 mg, UNK
     Route: 048
     Dates: start: 20120710
  5. VITAMIN D [Concomitant]
     Dosage: 400 IU, UNK
     Route: 048
     Dates: start: 20120710
  6. AMLODIPINE [Concomitant]
     Dosage: 5 mg, UNK
     Route: 048
     Dates: start: 20110102, end: 20120916
  7. DEXAMETHASONE [Concomitant]
     Dosage: 8 mg, UNK
     Route: 048
     Dates: start: 20120710, end: 20120913
  8. METOCLOPRAMIDE [Concomitant]
     Dosage: 10 mg, UNK
     Route: 048
     Dates: start: 20120710
  9. GRANISETRON [Concomitant]
     Dosage: 1 mg, UNK
     Route: 042
     Dates: start: 20120710, end: 20120821
  10. CARBASALATE CALCIUM [Concomitant]
     Dosage: 100 mg, UNK
     Route: 048
     Dates: start: 20120102
  11. MEROPENEM [Concomitant]
     Indication: URINARY TRACT INFECTION
     Dosage: 1000 mg, UNK
     Route: 042
     Dates: start: 20120830, end: 20120902
  12. AMOXICILLIN [Concomitant]
     Indication: URINARY TRACT INFECTION
     Dosage: 750 mg, tid
     Route: 048
     Dates: start: 20120903, end: 20120909
  13. METOPROLOL [Concomitant]
     Dosage: 50 mg, UNK
     Route: 048
     Dates: start: 20110102, end: 20120916
  14. ESOMEPRAZOLE [Concomitant]
     Dosage: 40 mg, UNK
     Route: 048
     Dates: start: 20120401
  15. HYDROCHLOROTHIAZIDE [Concomitant]
     Dosage: 12.5 mg, UNK
     Route: 048
     Dates: start: 20110105
  16. PERINDOPRIL [Concomitant]
     Dosage: 8 mg, UNK
     Route: 048
     Dates: start: 20110102
  17. SIMVASTATINE [Concomitant]
     Dosage: 40 mg, UNK
     Route: 048
     Dates: start: 20120102
  18. PARACETAMOL [Concomitant]
     Dosage: 500 mg, UNK
     Route: 048
     Dates: start: 20120628, end: 20120914

REACTIONS (2)
  - Pyrexia [Recovered/Resolved]
  - Diarrhoea [Recovered/Resolved]
